FAERS Safety Report 13777559 (Version 1)
Quarter: 2017Q3

REPORT INFORMATION
  Report Type: Report from Study
  Country: US (occurrence: US)
  Receive Date: 20170721
  Receipt Date: 20170721
  Transmission Date: 20171127
  Serious: Yes (Other)
  Sender: FDA-Public Use
  Company Number: PHEH2017US021899

PATIENT
  Sex: Male

DRUGS (1)
  1. ILARIS [Suspect]
     Active Substance: CANAKINUMAB
     Indication: PRODUCT USED FOR UNKNOWN INDICATION
     Dosage: 30 MG, QMO
     Route: 058

REACTIONS (6)
  - Pyrexia [Unknown]
  - Rash [Unknown]
  - Product use issue [Unknown]
  - Eczema [Unknown]
  - Staphylococcal infection [Unknown]
  - Skin disorder [Unknown]
